FAERS Safety Report 11808093 (Version 1)
Quarter: 2015Q4

REPORT INFORMATION
  Report Type: Spontaneous
  Country: IR (occurrence: IR)
  Receive Date: 20151207
  Receipt Date: 20151207
  Transmission Date: 20160305
  Serious: Yes (Other)
  Sender: FDA-Public Use
  Company Number: IR-SA-2015SA195467

PATIENT
  Age: 39 Year
  Sex: Female

DRUGS (2)
  1. SOLOSTAR [Concomitant]
     Active Substance: DEVICE
     Indication: DIABETES MELLITUS
     Dates: start: 20151120
  2. LANTUS SOLOSTAR [Suspect]
     Active Substance: INSULIN GLARGINE
     Indication: DIABETES MELLITUS
     Dosage: DOSE: 15
     Route: 058
     Dates: start: 20151120

REACTIONS (2)
  - Hypoglycaemia [Unknown]
  - Paralysis [Unknown]

NARRATIVE: CASE EVENT DATE: 20151120
